FAERS Safety Report 22397308 (Version 3)
Quarter: 2023Q2

REPORT INFORMATION
  Report Type: Report from Study
  Country: ZA (occurrence: ZA)
  Receive Date: 20230602
  Receipt Date: 20230614
  Transmission Date: 20230722
  Serious: Yes (Other)
  Sender: FDA-Public Use
  Company Number: ZA-CELLTRION INC.-2023ZA009723

PATIENT

DRUGS (4)
  1. INFLIXIMAB [Suspect]
     Active Substance: INFLIXIMAB
     Indication: Psoriatic arthropathy
     Dosage: 5 MG/KG
     Route: 042
  2. METHOTREXATE [Concomitant]
     Active Substance: METHOTREXATE
  3. CHLOROQUINE [Concomitant]
     Active Substance: CHLOROQUINE
  4. PREDNISONE [Concomitant]
     Active Substance: PREDNISONE

REACTIONS (2)
  - Condition aggravated [Recovered/Resolved]
  - Headache [Recovered/Resolved]

NARRATIVE: CASE EVENT DATE: 20230504
